FAERS Safety Report 10665435 (Version 1)
Quarter: 2014Q4

REPORT INFORMATION
  Report Type: Report from Study
  Country: GB (occurrence: GB)
  Receive Date: 20141219
  Receipt Date: 20141219
  Transmission Date: 20150529
  Serious: Yes (Death, Life-Threatening, Hospitalization, Disabling)
  Sender: FDA-Public Use
  Company Number: GB-AMGEN-GBRCT2014099069

PATIENT
  Age: 63 Year
  Sex: Female

DRUGS (10)
  1. LOPERAMIDE [Concomitant]
     Active Substance: LOPERAMIDE
     Dosage: UNK
     Route: 048
     Dates: start: 20141007
  2. DOXYCYCLINE. [Concomitant]
     Active Substance: DOXYCYCLINE
     Dosage: 200 MG, Q12H
     Route: 048
     Dates: start: 20141021
  3. PANITUMUMAB [Suspect]
     Active Substance: PANITUMUMAB
     Indication: INTESTINAL OBSTRUCTION
     Dosage: 440 MG, Q2WK
     Route: 041
     Dates: start: 20141007, end: 20141104
  4. OXALIPLATIN. [Concomitant]
     Active Substance: OXALIPLATIN
     Indication: INTESTINAL OBSTRUCTION
     Dosage: 160 MG, Q2WK
     Route: 041
     Dates: start: 20141007, end: 20141104
  5. METOCLOPRAMIDE. [Concomitant]
     Active Substance: METOCLOPRAMIDE
     Dosage: 10 MG, Q8H
     Route: 048
     Dates: start: 20141007
  6. DEXAMETHASONE. [Concomitant]
     Active Substance: DEXAMETHASONE
     Dosage: 4 MG, Q12H
     Route: 048
     Dates: start: 20141007, end: 20141108
  7. HYDROCORTISONE. [Concomitant]
     Active Substance: HYDROCORTISONE
     Dosage: UNK UNK, Q12H
     Route: 061
     Dates: start: 20141021
  8. SENNA [Concomitant]
     Active Substance: SENNA LEAF\SENNOSIDES\SENNOSIDES A AND B
     Dosage: 7.5 MG, QD
     Route: 048
     Dates: start: 20141105
  9. 5-FLUOROURACIL                     /00098801/ [Concomitant]
     Active Substance: FLUOROURACIL
     Indication: INTESTINAL OBSTRUCTION
     Dosage: 4400 MG, Q2WK
     Route: 041
     Dates: start: 20141007, end: 20141104
  10. PYRIDOXINE [Concomitant]
     Active Substance: PYRIDOXINE
     Dosage: 50 MG, Q8H
     Route: 048
     Dates: start: 20141007

REACTIONS (2)
  - Intestinal obstruction [Fatal]
  - Cerebrovascular accident [Fatal]

NARRATIVE: CASE EVENT DATE: 20141118
